FAERS Safety Report 4673925-X (Version None)
Quarter: 2005Q2

REPORT INFORMATION
  Report Type: 
  Country: None (occurrence: None)
  Receive Date: 20050523
  Receipt Date: 20050216
  Transmission Date: 20051028
  Serious: No
  Sender: FDA-Public Use
  Company Number: HQWYE461922FEB05

PATIENT
  Age: 64 Year
  Sex: Female
  Weight: 59.93 kg

DRUGS (17)
  1. ALAVERT D-12 (LORATADINE/PSEUDOEPHEDRINE SULFATE, TABLET, EXTENDED REL [Suspect]
     Indication: THROAT IRRITATION
     Dosage: 1 TABLET, TWICE, ORAL
     Route: 048
     Dates: start: 20050215, end: 20050215
  2. NITROLINGUAL (GLYCERYL TRINITRATE) [Concomitant]
  3. LESCOL [Concomitant]
  4. BUSPIRONE HCL [Concomitant]
  5. SEROQUEL [Concomitant]
  6. CALCIUM WITH VITAMIN D (CALCIUM PHOSPHATE/CALCIUM SODIUM LACTATE/ERGOC [Concomitant]
  7. ASPIRIN [Concomitant]
  8. POTASSIUM ACETATE [Concomitant]
  9. COZAAR [Concomitant]
  10. NORVASC [Concomitant]
  11. PROTONIX [Concomitant]
  12. FUROSEMIDE [Concomitant]
  13. DIAZEPAM [Concomitant]
  14. FOSAMAX [Concomitant]
  15. ZOLOFT [Concomitant]
  16. LAMICTAL [Concomitant]
  17. PRIMIDONE [Concomitant]

REACTIONS (2)
  - INSOMNIA [None]
  - NERVOUSNESS [None]
